FAERS Safety Report 8546047-5 (Version None)
Quarter: 2012Q3

REPORT INFORMATION
  Report Type: 
  Country: None (occurrence: None)
  Receive Date: 20120727
  Receipt Date: 20111202
  Transmission Date: 20120928
  Serious: No
  Sender: FDA-Public Use
  Company Number: US-ASTRAZENECA-2011SE73462

PATIENT
  Sex: Female

DRUGS (5)
  1. SEROQUEL XR [Suspect]
     Route: 048
     Dates: start: 20111021
  2. MEDICATION FOR VERTIGO [Concomitant]
     Indication: VERTIGO
  3. BLOOD PRESSURE PILLS [Concomitant]
     Indication: BLOOD PRESSURE
  4. RESTLESS LEG SYNDROME MEDICATION [Concomitant]
     Indication: RESTLESS LEGS SYNDROME
  5. CHOLESTEROL PILLS [Concomitant]
     Indication: BLOOD CHOLESTEROL

REACTIONS (4)
  - SINUSITIS [None]
  - COUGH [None]
  - SOMNOLENCE [None]
  - NASAL CONGESTION [None]
